FAERS Safety Report 12720669 (Version 3)
Quarter: 2016Q3

REPORT INFORMATION
  Report Type: Spontaneous
  Country: JP (occurrence: JP)
  Receive Date: 20160907
  Receipt Date: 20160922
  Transmission Date: 20161109
  Serious: Yes (Other)
  Sender: FDA-Public Use
  Company Number: JP-PFIZER INC-2016390213

PATIENT
  Age: 80 Year
  Sex: Male
  Weight: 44 kg

DRUGS (12)
  1. ELIQUIS [Suspect]
     Active Substance: APIXABAN
     Dosage: 2.5 MG, 2X/DAY
     Route: 048
     Dates: start: 20160216
  2. TRAZODONE [Concomitant]
     Active Substance: TRAZODONE HYDROCHLORIDE
     Indication: INSOMNIA
     Dosage: 25 MG, QD
     Route: 048
     Dates: start: 20140718
  3. CLEANAL [Concomitant]
     Active Substance: FUDOSTEINE
     Indication: PRODUCTIVE COUGH
     Dosage: 400 MG, TID
     Route: 048
     Dates: start: 20150416
  4. ELIQUIS [Suspect]
     Active Substance: APIXABAN
     Dosage: 2.5 MG, 2X/DAY
     Route: 048
     Dates: start: 20150603
  5. SUNRYTHM [Concomitant]
     Active Substance: PILSICAINIDE HYDROCHLORIDE
     Indication: ATRIAL FIBRILLATION
     Dosage: 25 MG, BID
     Route: 048
     Dates: start: 20140823
  6. ROZEREM [Concomitant]
     Active Substance: RAMELTEON
     Indication: INSOMNIA
     Dosage: 8 MG, QD
     Route: 048
     Dates: start: 20140718
  7. ELIQUIS [Suspect]
     Active Substance: APIXABAN
     Dosage: 5 MG, 2X/DAY
     Dates: start: 20160314
  8. CARDENALIN [Suspect]
     Active Substance: DOXAZOSIN MESYLATE
     Indication: HYPERTENSION
     Dosage: UNK UNK, QD (EARLY MORNING)
     Route: 065
     Dates: start: 20151211, end: 20160122
  9. OPALMON [Concomitant]
     Active Substance: LIMAPROST
     Indication: LUMBAR SPINAL STENOSIS
     Dosage: 5 UG, QD
     Route: 065
  10. MICARDIS [Concomitant]
     Active Substance: TELMISARTAN
     Indication: HYPERTENSION
     Dosage: 20 MG, BID
     Route: 048
     Dates: start: 20140718
  11. ELIQUIS [Suspect]
     Active Substance: APIXABAN
     Indication: CEREBROVASCULAR ACCIDENT PROPHYLAXIS
     Dosage: 2.5 MG, 2X/DAY
     Route: 048
     Dates: start: 20140731
  12. NEXIUM [Concomitant]
     Active Substance: ESOMEPRAZOLE MAGNESIUM
     Indication: GASTROOESOPHAGEAL REFLUX DISEASE
     Dosage: 20 MG, QD
     Route: 048
     Dates: start: 20140811

REACTIONS (3)
  - Orthostatic hypotension [Recovered/Resolved]
  - Loss of consciousness [Recovered/Resolved]
  - Haemoptysis [Recovered/Resolved]

NARRATIVE: CASE EVENT DATE: 20150516
